FAERS Safety Report 19459755 (Version 1)
Quarter: 2021Q2

REPORT INFORMATION
  Report Type: Spontaneous
  Country: CN (occurrence: CN)
  Receive Date: 20210624
  Receipt Date: 20210624
  Transmission Date: 20210717
  Serious: Yes (Other)
  Sender: FDA-Public Use
  Company Number: CN-PFIZER INC-2021703105

PATIENT
  Age: 63 Year
  Sex: Male

DRUGS (2)
  1. MEDROL [Suspect]
     Active Substance: METHYLPREDNISOLONE
     Indication: RHEUMATOID ARTHRITIS
     Dosage: 2.000 MG, 2X/DAY
     Route: 048
     Dates: start: 20210520, end: 20210525
  2. LEI GONG TENG DUO GAN [Suspect]
     Active Substance: HERBALS
     Indication: RHEUMATOID ARTHRITIS
     Dosage: 20.000 MG, 2X/DAY
     Route: 048
     Dates: start: 20210520, end: 20210525

REACTIONS (1)
  - Abdominal discomfort [Recovering/Resolving]

NARRATIVE: CASE EVENT DATE: 20210521
